FAERS Safety Report 9086107 (Version 3)
Quarter: 2013Q1

REPORT INFORMATION
  Report Type: Spontaneous
  Country: US (occurrence: US)
  Receive Date: 20130131
  Receipt Date: 20130308
  Transmission Date: 20140127
  Serious: Yes (Disabling)
  Sender: FDA-Public Use
  Company Number: US-JNJFOC-20130113552

PATIENT
  Sex: Male
  Weight: 81.65 kg

DRUGS (2)
  1. TYLENOL PM [Suspect]
     Indication: PRODUCT USED FOR UNKNOWN INDICATION
     Route: 048
     Dates: start: 20110223
  2. NARCOTIC ANALGESICS, NOS [Concomitant]
     Indication: PAIN

REACTIONS (4)
  - Horner^s syndrome [Unknown]
  - Neuralgic amyotrophy [Recovering/Resolving]
  - Abdominal pain upper [Unknown]
  - Diarrhoea [Unknown]
